FAERS Safety Report 10217644 (Version 1)
Quarter: 2014Q2

REPORT INFORMATION
  Report Type: Spontaneous
  Country: US (occurrence: US)
  Receive Date: 20140604
  Receipt Date: 20140604
  Transmission Date: 20141212
  Serious: No
  Sender: FDA-Public Use
  Company Number: US-GILEAD-2013-0076311

PATIENT
  Age: 33 Year
  Sex: Female

DRUGS (1)
  1. VIREAD [Suspect]
     Indication: HEPATITIS B
     Dosage: 1100 UNK, UNK
     Dates: start: 20120701

REACTIONS (3)
  - Drug interaction [Unknown]
  - Nausea [Unknown]
  - Dizziness [Unknown]
